FAERS Safety Report 8623082 (Version 4)
Quarter: 2013Q3

REPORT INFORMATION
  Report Type: Spontaneous
  Country: US (occurrence: US)
  Receive Date: 20120620
  Receipt Date: 20130709
  Transmission Date: 20140515
  Serious: Yes (Hospitalization)
  Sender: FDA-Public Use
  Company Number: US-BIOGENIDEC-2012BI021104

PATIENT
  Age: 50 Year
  Sex: Female

DRUGS (3)
  1. TYSABRI [Suspect]
     Indication: MULTIPLE SCLEROSIS
     Route: 042
     Dates: start: 20080825
  2. AVONEX [Concomitant]
     Indication: MULTIPLE SCLEROSIS
     Route: 030
  3. AVONEX [Concomitant]
     Indication: MULTIPLE SCLEROSIS
     Route: 030

REACTIONS (7)
  - Knee arthroplasty [Recovered/Resolved]
  - Mental disorder [Unknown]
  - Fall [Unknown]
  - Tendon rupture [Recovered/Resolved]
  - Pulmonary embolism [Recovered/Resolved]
  - Medical device removal [Recovered/Resolved]
  - Impaired healing [Not Recovered/Not Resolved]
